FAERS Safety Report 9555885 (Version 2)
Quarter: 2013Q4

REPORT INFORMATION
  Report Type: Spontaneous
  Country: US (occurrence: None)
  Receive Date: 20130724
  Receipt Date: 20131226
  Transmission Date: 20140711
  Serious: Yes (Other)
  Sender: FDA-Public Use
  Company Number: PHEH2013US009095

PATIENT
  Age: 40 Year
  Sex: Female
  Weight: 88.4 kg

DRUGS (6)
  1. GILENYA (FINGOLIMOD) CAPSULE, 0.5MG [Suspect]
     Indication: MULTIPLE SCLEROSIS
     Route: 048
     Dates: start: 201202
  2. SYNTHROID (LEVOTHYROXINE SODIUM) [Concomitant]
  3. TOPAMAX (TOPIRAMATE) [Concomitant]
  4. NEURONTIN (GABAPENTIN) [Concomitant]
  5. ALPOX (ALPRAZOLAM) [Concomitant]
  6. ELAVIL (AMITRIPTYLINE HYDROCHLORIDE) [Concomitant]

REACTIONS (1)
  - Herpes zoster [None]
